FAERS Safety Report 20552143 (Version 1)
Quarter: 2022Q1

REPORT INFORMATION
  Report Type: Spontaneous
  Country: US (occurrence: US)
  Receive Date: 20220304
  Receipt Date: 20220304
  Transmission Date: 20220423
  Serious: Yes (Other)
  Sender: FDA-Public Use
  Company Number: US-GLAXOSMITHKLINE-US2022GSK039902

PATIENT
  Sex: Male

DRUGS (4)
  1. ZANTAC [Suspect]
     Active Substance: RANITIDINE HYDROCHLORIDE
     Indication: Gastrointestinal disorder prophylaxis
     Dosage: 75 MG, QD
     Route: 065
     Dates: start: 200505, end: 201108
  2. ZANTAC [Suspect]
     Active Substance: RANITIDINE HYDROCHLORIDE
     Indication: Gastrointestinal disorder prophylaxis
     Dosage: 75 MG, QD
     Route: 065
     Dates: start: 200505, end: 201108
  3. RANITIDINE [Suspect]
     Active Substance: RANITIDINE
     Indication: Gastrointestinal disorder prophylaxis
     Dosage: 25 MG, QD
     Route: 065
     Dates: start: 200505, end: 201108
  4. RANITIDINE [Suspect]
     Active Substance: RANITIDINE
     Indication: Gastrointestinal disorder prophylaxis
     Dosage: 25 MG, QD
     Route: 065
     Dates: start: 200505, end: 201108

REACTIONS (1)
  - Prostate cancer [Unknown]
